FAERS Safety Report 16741838 (Version 1)
Quarter: 2019Q3

REPORT INFORMATION
  Report Type: Spontaneous
  Country: ES (occurrence: ES)
  Receive Date: 20190826
  Receipt Date: 20190826
  Transmission Date: 20191005
  Serious: Yes (Congenital Anomaly)
  Sender: FDA-Public Use
  Company Number: ES-ARBOR PHARMACEUTICALS, LLC-ES-2019ARB001293

PATIENT

DRUGS (1)
  1. GABAPENTIN ENACARBIL [Suspect]
     Active Substance: GABAPENTIN ENACARBIL
     Indication: BIPOLAR DISORDER
     Dosage: 200 MG, QD
     Route: 015

REACTIONS (2)
  - Spina bifida [Unknown]
  - Foetal exposure during pregnancy [Unknown]
